FAERS Safety Report 8193976-0 (Version None)
Quarter: 2012Q1

REPORT INFORMATION
  Report Type: 
  Country: None (occurrence: None)
  Receive Date: 20120308
  Receipt Date: 20120302
  Transmission Date: 20120608
  Serious: Yes (Death)
  Sender: FDA-Public Use
  Company Number: US-CELGENEUS-163-21880-12020556

PATIENT
  Sex: Male
  Weight: 51.302 kg

DRUGS (24)
  1. ASPIRIN [Concomitant]
     Route: 065
  2. DECADRON [Concomitant]
     Indication: MULTIPLE MYELOMA
     Route: 065
  3. MAGNESIUM OXIDE [Concomitant]
     Dosage: 400 MILLIGRAM
     Route: 048
     Dates: start: 20110810
  4. REVLIMID [Suspect]
     Dosage: 25 MILLIGRAM
     Route: 048
     Dates: start: 20110901, end: 20120101
  5. CYMBALTA [Concomitant]
     Route: 065
  6. CLINDAMYCIN [Concomitant]
     Dosage: 1 PERCENT
     Route: 061
     Dates: start: 20110214
  7. DEXAMETHASONE [Concomitant]
     Route: 048
     Dates: start: 20080301, end: 20081001
  8. IMODIUM A-D [Concomitant]
     Dosage: 2 MILLIGRAM
     Route: 048
     Dates: start: 20110620
  9. MAGNESIUM OXIDE [Concomitant]
     Dosage: 400 MILLIGRAM
     Route: 048
     Dates: start: 20110620
  10. ARANESP [Concomitant]
     Indication: MULTIPLE MYELOMA
     Dosage: 500 MICROGRAM
     Route: 065
     Dates: start: 20111129
  11. REVLIMID [Suspect]
     Dosage: 25 MILLIGRAM
     Route: 048
     Dates: start: 20090901, end: 20100101
  12. NEURONTIN [Concomitant]
     Route: 065
  13. REVLIMID [Suspect]
     Dosage: 25 MILLIGRAM
     Route: 048
     Dates: start: 20080327, end: 20081001
  14. BETAMETHASONE DIPROPIONATE [Concomitant]
     Dosage: .05 PERCENT
     Route: 061
     Dates: start: 20110331
  15. DEXAMETHASONE [Concomitant]
     Route: 048
     Dates: start: 20090901, end: 20100101
  16. LAMOTRIGINE [Concomitant]
     Dosage: 150 MILLIGRAM
     Route: 048
     Dates: start: 20110930
  17. MULTI-VITAMIN [Concomitant]
     Route: 065
  18. MAGNESIUM OXIDE [Concomitant]
     Dosage: 400 MILLIGRAM
     Route: 048
     Dates: start: 20101207
  19. OXYCODONE/ACETAMINOPHEN [Concomitant]
     Dosage: 5MG-325MG
     Route: 048
     Dates: start: 20110906
  20. ARANESP [Concomitant]
     Indication: CHEMOTHERAPY
  21. ZOMETA [Concomitant]
     Indication: MULTIPLE MYELOMA
     Dosage: 4 MILLIGRAM
     Route: 065
     Dates: start: 20111129
  22. LAMOTRIGINE [Concomitant]
     Dosage: 100 MILLIGRAM
     Route: 048
     Dates: start: 20110906, end: 20110930
  23. VELCADE [Concomitant]
     Indication: MULTIPLE MYELOMA
     Route: 065
  24. DEXAMETHASONE [Concomitant]
     Dosage: 20 MILLIGRAM
     Route: 048
     Dates: start: 20110901, end: 20120101

REACTIONS (1)
  - OESOPHAGEAL SQUAMOUS CELL CARCINOMA [None]
